FAERS Safety Report 16867061 (Version 1)
Quarter: 2019Q3

REPORT INFORMATION
  Report Type: Spontaneous
  Country: TR (occurrence: TR)
  Receive Date: 20190930
  Receipt Date: 20190930
  Transmission Date: 20191005
  Serious: Yes (Other)
  Sender: FDA-Public Use
  Company Number: TR-ACCORD-155364

PATIENT
  Age: 46 Year
  Sex: Male

DRUGS (1)
  1. SERTRALINE [Suspect]
     Active Substance: SERTRALINE HYDROCHLORIDE
     Indication: DEPRESSION
     Dosage: STARTED WITH 25 MG/DAY, INCREASE THE DOSE TO 50 MG/DAY, DOSE REDUCED TO 25 MG/DAY

REACTIONS (1)
  - Salivary hypersecretion [Recovered/Resolved]
